FAERS Safety Report 23690032 (Version 1)
Quarter: 2024Q2

REPORT INFORMATION
  Report Type: Report from Study
  Country: US (occurrence: US)
  Receive Date: 20240401
  Receipt Date: 20240401
  Transmission Date: 20240716
  Serious: Yes (Hospitalization)
  Sender: FDA-Public Use
  Company Number: US-JNJFOC-20240372752

PATIENT
  Age: 5 Decade
  Sex: Male

DRUGS (10)
  1. SPRAVATO [Suspect]
     Active Substance: ESKETAMINE
     Indication: Depression
     Dosage: 56 MG, 2 TOTAL DOSES
     Dates: start: 20221109, end: 20221115
  2. SPRAVATO [Suspect]
     Active Substance: ESKETAMINE
     Dosage: 84 MG, 1 TOTAL DOSES
     Dates: start: 20221117, end: 20221117
  3. SPRAVATO [Suspect]
     Active Substance: ESKETAMINE
     Dosage: 56MG, 6 TOTAL DOSES
     Dates: start: 20221121, end: 20221209
  4. SPRAVATO [Suspect]
     Active Substance: ESKETAMINE
     Dosage: 84 MG, 1 TOTAL DOSES
     Dates: start: 20221214, end: 20221214
  5. SPRAVATO [Suspect]
     Active Substance: ESKETAMINE
     Dosage: 56 MG, 2 TOTAL DOSES
     Dates: start: 20221219, end: 20221229
  6. SPRAVATO [Suspect]
     Active Substance: ESKETAMINE
     Dosage: 84 MG, 2 TOTAL DOSES
     Dates: start: 20230130, end: 20230207
  7. SPRAVATO [Suspect]
     Active Substance: ESKETAMINE
     Dosage: 28 MG,1 TOTAL DOSES
     Dates: start: 20231017, end: 20231017
  8. SPRAVATO [Suspect]
     Active Substance: ESKETAMINE
     Dosage: 56 MG,3 TOTAL DOSES
     Dates: start: 20231019, end: 20231026
  9. SPRAVATO [Suspect]
     Active Substance: ESKETAMINE
     Dosage: 28 MG,1 TOTAL DOSES
     Dates: start: 20231030, end: 20231030
  10. SPRAVATO [Suspect]
     Active Substance: ESKETAMINE
     Dosage: 56 MG,17 TOTAL DOSES
     Dates: start: 20231102, end: 20240206

REACTIONS (1)
  - Hospitalisation [Unknown]
